FAERS Safety Report 8960078 (Version 2)
Quarter: 2013Q1

REPORT INFORMATION
  Report Type: Spontaneous
  Country: US (occurrence: US)
  Receive Date: 20121211
  Receipt Date: 20130131
  Transmission Date: 20140127
  Serious: Yes (Other)
  Sender: FDA-Public Use
  Company Number: US-GLAXOSMITHKLINE-A1000347A

PATIENT
  Age: 57 Year
  Sex: Female
  Weight: 92.7 kg

DRUGS (1)
  1. VENTOLIN [Suspect]
     Indication: CHRONIC OBSTRUCTIVE PULMONARY DISEASE
     Dosage: 2PUFF AS REQUIRED
     Route: 055
     Dates: start: 20100604

REACTIONS (3)
  - Foreign body aspiration [Recovered/Resolved]
  - Cough [Unknown]
  - Product quality issue [Unknown]
